FAERS Safety Report 7401559-2 (Version None)
Quarter: 2011Q2

REPORT INFORMATION
  Report Type: 
  Country: None (occurrence: None)
  Receive Date: 20110408
  Receipt Date: 20110329
  Transmission Date: 20111010
  Serious: Yes (Hospitalization)
  Sender: FDA-Public Use
  Company Number: US-BIOGENIDEC-2010BI034883

PATIENT
  Age: 54 Year
  Sex: Male

DRUGS (3)
  1. STEROID (NOS) [Concomitant]
     Route: 042
  2. AVONEX [Suspect]
     Route: 030
  3. AVONEX [Suspect]
     Indication: MULTIPLE SCLEROSIS
     Route: 030
     Dates: start: 20030215

REACTIONS (7)
  - GAIT DISTURBANCE [None]
  - INFLAMMATION [None]
  - HEMIPARESIS [None]
  - AMNESIA [None]
  - FATIGUE [None]
  - DISTURBANCE IN ATTENTION [None]
  - MULTIPLE SCLEROSIS RELAPSE [None]
